FAERS Safety Report 10025355 (Version 2)
Quarter: 2014Q2

REPORT INFORMATION
  Report Type: Report from Study
  Country: BY (occurrence: BY)
  Receive Date: 20140320
  Receipt Date: 20140527
  Transmission Date: 20141212
  Serious: Yes (Hospitalization)
  Sender: FDA-Public Use
  Company Number: BY-GLAXOSMITHKLINE-B0977384A

PATIENT
  Age: 60 Year
  Sex: Male
  Weight: 96 kg

DRUGS (5)
  1. FLUTICASONE FUROATE + VILANTEROL TRIFENATATE [Suspect]
     Indication: CHRONIC OBSTRUCTIVE PULMONARY DISEASE
     Dates: start: 20140130, end: 20140314
  2. FLUTICASONE FUROATE + VILANTEROL TRIFENATATE [Suspect]
     Dates: start: 20140322
  3. ASPECARD [Concomitant]
     Indication: PERIPHERAL ARTERIAL OCCLUSIVE DISEASE
     Dosage: 75MG PER DAY
     Route: 048
     Dates: start: 2012
  4. BISOPROLOL [Concomitant]
     Indication: HYPERTENSION
     Dosage: 2.5MG PER DAY
     Route: 048
     Dates: start: 2012
  5. LOVASTATIN [Concomitant]
     Indication: HYPERCHOLESTEROLAEMIA
     Dosage: 20MG PER DAY
     Route: 048
     Dates: start: 2012

REACTIONS (1)
  - Atrial fibrillation [Recovered/Resolved]
